FAERS Safety Report 4451884-2 (Version None)
Quarter: 2004Q3

REPORT INFORMATION
  Report Type: 
  Country: None (occurrence: None)
  Receive Date: 20040915
  Receipt Date: 20040915
  Transmission Date: 20050211
  Serious: Yes (Life-Threatening, Hospitalization)
  Sender: FDA-Public Use
  Company Number: None

PATIENT
  Age: 83 Year
  Sex: Male
  Weight: 87.5 kg

DRUGS (4)
  1. DIGOXIN [Suspect]
  2. AMIODARONE [Concomitant]
  3. DILTIAZEM [Concomitant]
  4. METOPROLOL [Concomitant]

REACTIONS (2)
  - BRADYCARDIA [None]
  - SYNCOPE [None]
